FAERS Safety Report 5419188-9 (Version None)
Quarter: 2007Q3

REPORT INFORMATION
  Report Type: 
  Country: None (occurrence: None)
  Receive Date: 20070815
  Receipt Date: 20070815
  Transmission Date: 20080115
  Serious: Yes (Hospitalization)
  Sender: FDA-Public Use
  Company Number: None

PATIENT
  Sex: Male
  Weight: 86 kg

DRUGS (2)
  1. CYTARABINE [Suspect]
     Dosage: 33600 MG
     Dates: end: 20070715
  2. ETOPOSIDE [Suspect]
     Dosage: 3400 MG
     Dates: end: 20070715

REACTIONS (7)
  - ASCITES [None]
  - CLOSTRIDIUM DIFFICILE COLITIS [None]
  - GASTROINTESTINAL NECROSIS [None]
  - PROCTOCOLITIS [None]
  - PSEUDOMEMBRANOUS COLITIS [None]
  - SMALL INTESTINAL OBSTRUCTION [None]
  - URINE OUTPUT DECREASED [None]
